FAERS Safety Report 6817368-9 (Version None)
Quarter: 2010Q3

REPORT INFORMATION
  Report Type: 
  Country: None (occurrence: None)
  Receive Date: 20100706
  Receipt Date: 20100622
  Transmission Date: 20110219
  Serious: Yes (Hospitalization, Other)
  Sender: FDA-Public Use
  Company Number: US-BAYER-201030180GPV

PATIENT
  Age: 25 Year
  Sex: Female

DRUGS (1)
  1. MIRENA [Suspect]
     Indication: PRODUCT USED FOR UNKNOWN INDICATION
     Route: 015

REACTIONS (6)
  - ABDOMINAL PAIN [None]
  - DEVICE DISLOCATION [None]
  - FLANK PAIN [None]
  - PELVIC PAIN [None]
  - PYREXIA [None]
  - UTERINE PERFORATION [None]
